FAERS Safety Report 18141038 (Version 2)
Quarter: 2020Q3

REPORT INFORMATION
  Report Type: Spontaneous
  Country: CN (occurrence: CN)
  Receive Date: 20200812
  Receipt Date: 20200825
  Transmission Date: 20201103
  Serious: Yes (Other)
  Sender: FDA-Public Use
  Company Number: CN-009507513-2008CHN004740

PATIENT
  Age: 43 Year
  Sex: Female
  Weight: 67.5 kg

DRUGS (7)
  1. CEFUROXIME. [Concomitant]
     Active Substance: CEFUROXIME
     Indication: INFECTION PROPHYLAXIS
     Dosage: 1.5 GRAM, IMMEDIATELY (ST)
     Route: 041
     Dates: start: 20200723
  2. METRONIDAZOLE. [Concomitant]
     Active Substance: METRONIDAZOLE
     Indication: INFECTION PROPHYLAXIS
     Dosage: 100 MILLILITER, BID
     Route: 041
     Dates: start: 20200723, end: 20200724
  3. TIENAM [Suspect]
     Active Substance: CILASTATIN SODIUM\IMIPENEM
     Indication: INFECTION
     Dosage: 500 MILLIGRAM, Q8H
     Route: 041
     Dates: start: 20200724, end: 20200726
  4. CEFUROXIME. [Concomitant]
     Active Substance: CEFUROXIME
     Dosage: 1.5 GRAM, BID
     Route: 041
     Dates: start: 20200723, end: 20200723
  5. SODIUM CHLORIDE. [Concomitant]
     Active Substance: SODIUM CHLORIDE
     Indication: INFECTION PROPHYLAXIS
     Dosage: 100 MILLILITER, IMMEDIATELY (ST)
     Route: 041
     Dates: start: 20200723
  6. SODIUM CHLORIDE. [Concomitant]
     Active Substance: SODIUM CHLORIDE
     Dosage: 100 MILLILITER, BID
     Route: 041
     Dates: start: 20200723, end: 20200724
  7. SODIUM CHLORIDE. [Concomitant]
     Active Substance: SODIUM CHLORIDE
     Indication: INFECTION
     Dosage: 100 MILLILITER, Q8H
     Route: 041
     Dates: start: 20200724

REACTIONS (12)
  - Chest discomfort [Recovering/Resolving]
  - Diarrhoea [Recovering/Resolving]
  - Bundle branch block right [Unknown]
  - Electrocardiogram T wave abnormal [Unknown]
  - Nausea [Recovering/Resolving]
  - Abdominal discomfort [Recovering/Resolving]
  - Vomiting [Recovering/Resolving]
  - Gastric disorder [Unknown]
  - Gastrointestinal disorder [Unknown]
  - Gastritis [Unknown]
  - Electrocardiogram low voltage [Unknown]
  - Abdominal distension [Recovering/Resolving]

NARRATIVE: CASE EVENT DATE: 202007
